FAERS Safety Report 8147884-1 (Version None)
Quarter: 2012Q1

REPORT INFORMATION
  Report Type: 
  Country: None (occurrence: None)
  Receive Date: 20120218
  Receipt Date: 20110321
  Transmission Date: 20120608
  Serious: No
  Sender: FDA-Public Use
  Company Number: US-ALLERGAN-1103961US

PATIENT

DRUGS (1)
  1. BOTOX COSMETIC [Suspect]
     Indication: PRODUCT USED FOR UNKNOWN INDICATION
     Dosage: UNK
     Dates: start: 20110318, end: 20110318

REACTIONS (3)
  - EYE SWELLING [None]
  - INJECTION SITE OEDEMA [None]
  - WRONG TECHNIQUE IN DRUG USAGE PROCESS [None]
